FAERS Safety Report 16414530 (Version 1)
Quarter: 2019Q2

REPORT INFORMATION
  Report Type: Spontaneous
  Country: CA (occurrence: CA)
  Receive Date: 20190611
  Receipt Date: 20190611
  Transmission Date: 20190711
  Serious: Yes (Other)
  Sender: FDA-Public Use
  Company Number: CA-TEVA-2019-CA-1061717

PATIENT
  Age: 74 Month

DRUGS (1)
  1. PREDNISONE. [Suspect]
     Active Substance: PREDNISONE
     Indication: EPILEPSY
     Route: 065

REACTIONS (3)
  - Weight increased [Unknown]
  - Gastrointestinal haemorrhage [Unknown]
  - Irritability [Unknown]
